FAERS Safety Report 10266139 (Version 2)
Quarter: 2014Q3

REPORT INFORMATION
  Report Type: Spontaneous
  Country: US (occurrence: US)
  Receive Date: 20140627
  Receipt Date: 20140711
  Transmission Date: 20150326
  Serious: Yes (Other)
  Sender: FDA-Public Use
  Company Number: CHPA2014US007954

PATIENT
  Age: 60 Year
  Sex: Female

DRUGS (2)
  1. VOLTAREN [Suspect]
     Active Substance: DICLOFENAC SODIUM
     Indication: OFF LABEL USE
  2. VOLTAREN [Suspect]
     Active Substance: DICLOFENAC SODIUM
     Indication: TENDONITIS
     Dosage: UNK, 3 TO 4 TIMES A DAY
     Route: 061
     Dates: end: 20140602

REACTIONS (5)
  - Lichenification [Recovering/Resolving]
  - Erythema [Recovered/Resolved]
  - Drug administered at inappropriate site [Unknown]
  - Infection [Recovered/Resolved]
  - Skin exfoliation [Unknown]
